FAERS Safety Report 25954817 (Version 1)
Quarter: 2025Q4

REPORT INFORMATION
  Report Type: Spontaneous
  Country: EU (occurrence: EU)
  Receive Date: 20251024
  Receipt Date: 20251024
  Transmission Date: 20260118
  Serious: Yes (Hospitalization, Other)
  Sender: BRISTOL-MYERS SQUIBB COMPANY
  Company Number: EU-BRISTOL-MYERS SQUIBB COMPANY-2025-143672

PATIENT
  Age: 40 Year
  Sex: Female

DRUGS (1)
  1. DEUCRAVACITINIB [Suspect]
     Active Substance: DEUCRAVACITINIB
     Indication: Psoriasis
     Dates: start: 202507

REACTIONS (3)
  - Facial paralysis [Unknown]
  - Eczema [Unknown]
  - Viral infection [Unknown]

NARRATIVE: CASE EVENT DATE: 20250901
